FAERS Safety Report 13659262 (Version 1)
Quarter: 2017Q2

REPORT INFORMATION
  Report Type: Spontaneous
  Country: US (occurrence: US)
  Receive Date: 20170616
  Receipt Date: 20170616
  Transmission Date: 20170830
  Serious: Yes (Hospitalization)
  Sender: FDA-Public Use
  Company Number: None

PATIENT
  Age: 69 Year
  Sex: Male
  Weight: 124.7 kg

DRUGS (11)
  1. COLACE [Concomitant]
     Active Substance: DOCUSATE SODIUM
  2. DULCOLAX NOS [Concomitant]
     Active Substance: BISACODYL OR DOCUSATE SODIUM
  3. PROAMATINE [Concomitant]
     Active Substance: MIDODRINE HYDROCHLORIDE
  4. HUMALOG [Suspect]
     Active Substance: INSULIN LISPRO
     Indication: DIABETES MELLITUS
     Dosage: ?DOSE OR AMOUNT - SSI 4X DAILY
     Route: 058
  5. APAP [Concomitant]
     Active Substance: ACETAMINOPHEN
  6. DURAGESIC [Concomitant]
     Active Substance: FENTANYL
  7. EMLA [Concomitant]
     Active Substance: LIDOCAINE\PRILOCAINE
  8. ASA [Concomitant]
     Active Substance: ASPIRIN
  9. PHOSLO [Concomitant]
     Active Substance: CALCIUM ACETATE
  10. FLONASE [Concomitant]
     Active Substance: FLUTICASONE PROPIONATE
  11. ZYRTEC [Concomitant]
     Active Substance: CETIRIZINE HYDROCHLORIDE

REACTIONS (3)
  - Hypoglycaemia [None]
  - Azotaemia [None]
  - Mental status changes [None]

NARRATIVE: CASE EVENT DATE: 20170427
